FAERS Safety Report 5976461-3 (Version None)
Quarter: 2008Q4

REPORT INFORMATION
  Report Type: 
  Country: None (occurrence: None)
  Receive Date: 20081126
  Receipt Date: 20081114
  Transmission Date: 20090506
  Serious: Yes (Hospitalization)
  Sender: FDA-Public Use
  Company Number: 238731J08USA

PATIENT
  Age: 53 Year
  Sex: Female

DRUGS (5)
  1. REBIF [Suspect]
     Indication: MULTIPLE SCLEROSIS
     Dosage: 44 MCG, 3 IN 1 WEEKS, SUBCUTANEOUS
     Route: 058
     Dates: start: 20020508
  2. CARBATROL [Concomitant]
  3. LOPRESSOR [Concomitant]
  4. CARDIZEM (DILTIAZEM /00489701/) [Concomitant]
  5. PREMARIN [Concomitant]

REACTIONS (5)
  - CHEST PAIN [None]
  - EYE PAIN [None]
  - INTERVERTEBRAL DISC PROTRUSION [None]
  - SENSORY DISTURBANCE [None]
  - SPINAL COLUMN STENOSIS [None]
